FAERS Safety Report 15724479 (Version 2)
Quarter: 2019Q1

REPORT INFORMATION
  Report Type: Spontaneous
  Country: SE (occurrence: SE)
  Receive Date: 20181214
  Receipt Date: 20190211
  Transmission Date: 20190417
  Serious: Yes (Hospitalization, Other)
  Sender: FDA-Public Use
  Company Number: IND-SE-009507513-1507SWE004563

PATIENT
  Age: 50 Year
  Sex: Male

DRUGS (3)
  1. ARCOXIA [Suspect]
     Active Substance: ETORICOXIB
     Indication: OSTEOARTHRITIS
     Dosage: THE FIRST WEEKS THE PATIENT TOOK IT REGULARLY, THEREAFTER AS NECESSARY
     Route: 048
     Dates: start: 201504, end: 20150618
  2. CITODON (ACETAMINOPHEN (+) CODEINE PHOSPHATE) [Concomitant]
     Dosage: UNK, AS NECESSARY
  3. ARCOXIA [Suspect]
     Active Substance: ETORICOXIB
     Indication: ARTHRITIS

REACTIONS (2)
  - Cerebral infarction [Not Recovered/Not Resolved]
  - Basal ganglia infarction [Unknown]

NARRATIVE: CASE EVENT DATE: 20150618
